FAERS Safety Report 7397709-7 (Version None)
Quarter: 2011Q2

REPORT INFORMATION
  Report Type: 
  Country: None (occurrence: None)
  Receive Date: 20110401
  Receipt Date: 20110401
  Transmission Date: 20111010
  Serious: No
  Sender: FDA-Public Use
  Company Number: None

PATIENT
  Sex: Female
  Weight: 49.8957 kg

DRUGS (1)
  1. PERMETHRIN [Suspect]
     Indication: LICE INFESTATION
     Dosage: PERMETHRIN 5 % TOPICAL CREAM TOPICAL
     Route: 061
     Dates: start: 20110304, end: 20110329

REACTIONS (1)
  - LICE INFESTATION [None]
